FAERS Safety Report 6207552-X (Version None)
Quarter: 2009Q2

REPORT INFORMATION
  Report Type: 
  Country: None (occurrence: None)
  Receive Date: 20090528
  Receipt Date: 20090523
  Transmission Date: 20091009
  Serious: Yes (Other)
  Sender: FDA-Public Use
  Company Number: PHHY2009BR20307

PATIENT
  Age: 28 Year
  Sex: Male

DRUGS (1)
  1. TEGRETOL [Suspect]
     Dosage: UNK
     Route: 048
     Dates: start: 20090522

REACTIONS (3)
  - LETHARGY [None]
  - MYDRIASIS [None]
  - SUICIDE ATTEMPT [None]
